FAERS Safety Report 6441235-6 (Version None)
Quarter: 2009Q4

REPORT INFORMATION
  Report Type: 
  Country: None (occurrence: None)
  Receive Date: 20091112
  Receipt Date: 20091111
  Transmission Date: 20100525
  Serious: Yes (Life-Threatening)
  Sender: FDA-Public Use
  Company Number: 2009TJ0215FU1

PATIENT
  Age: 19 Month
  Sex: Female

DRUGS (1)
  1. TWINJECT 0.3 [Suspect]
     Indication: ANAPHYLACTIC REACTION
     Dosage: 0.15 MG, AS NEEDED
     Dates: start: 20090921, end: 20090921

REACTIONS (1)
  - DEVICE FAILURE [None]
